FAERS Safety Report 13964087 (Version 2)
Quarter: 2017Q3

REPORT INFORMATION
  Report Type: Spontaneous
  Country: JO (occurrence: JO)
  Receive Date: 20170913
  Receipt Date: 20170922
  Transmission Date: 20171128
  Serious: Yes (Other)
  Sender: FDA-Public Use
  Company Number: JO-WEST-WARD PHARMACEUTICALS CORP.-JO-H14001-17-03151

PATIENT
  Age: 39 Year
  Sex: Male

DRUGS (4)
  1. LOXOL (LAMOTRIGINE) [Suspect]
     Active Substance: LAMOTRIGINE
     Indication: ANXIETY
  2. SOLOTIK [Concomitant]
     Indication: PRODUCT USED FOR UNKNOWN INDICATION
     Route: 065
  3. DEANXIT [Concomitant]
     Active Substance: FLUPENTIXOL DIHYDROCHLORIDE\MELITRACEN HYDROCHLORIDE
     Indication: PRODUCT USED FOR UNKNOWN INDICATION
     Route: 065
  4. LOXOL (LAMOTRIGINE) [Suspect]
     Active Substance: LAMOTRIGINE
     Indication: DEPRESSION
     Dosage: USED SACHET OF THE PRODUCT
     Route: 048

REACTIONS (9)
  - Anxiety [Not Recovered/Not Resolved]
  - Pharyngitis [Recovered/Resolved]
  - Fatigue [Unknown]
  - Product taste abnormal [None]
  - Aversion [Not Recovered/Not Resolved]
  - Malaise [Unknown]
  - Appetite disorder [Unknown]
  - Depression [Not Recovered/Not Resolved]
  - Product blister packaging issue [None]
